FAERS Safety Report 13054469 (Version 1)
Quarter: 2016Q4

REPORT INFORMATION
  Report Type: Spontaneous
  Country: FR (occurrence: FR)
  Receive Date: 20161222
  Receipt Date: 20161222
  Transmission Date: 20170207
  Serious: Yes (Hospitalization)
  Sender: FDA-Public Use
  Company Number: FR-PFIZER INC-2016583767

PATIENT
  Age: 67 Year
  Sex: Male
  Weight: 123 kg

DRUGS (9)
  1. INNOHEP [Suspect]
     Active Substance: TINZAPARIN SODIUM
     Indication: EMBOLISM
     Dosage: 0.9 ML, DAILY
     Route: 058
     Dates: start: 201610, end: 20161123
  2. SOLUPRED /00016201/ [Concomitant]
     Active Substance: PREDNISOLONE
     Dosage: 80 MG, 1X/DAY
  3. TRIATEC /00885601/ [Concomitant]
     Active Substance: RAMIPRIL
     Dosage: 1 TO 2 DF DAILY
  4. LEVOTHYROX [Concomitant]
     Active Substance: LEVOTHYROXINE
     Dosage: 1 DF, DAILY
  5. TOPALGIC /00599202/ [Concomitant]
     Active Substance: TRAMADOL
     Dosage: 1 DF, EVERY 6 HOURS
  6. PARACETAMOL [Concomitant]
     Active Substance: ACETAMINOPHEN
     Dosage: 1 G, EVERY 6 HOURS
  7. SUTENT [Suspect]
     Active Substance: SUNITINIB MALATE
     Indication: RENAL CANCER
     Dosage: 50 MG, DAILY(4 OUT OF 6 WEEKS)
     Route: 048
     Dates: start: 201610, end: 20161122
  8. METFORMINE [Concomitant]
     Active Substance: METFORMIN HYDROCHLORIDE
     Dosage: 500 MG, 1X/DAY
  9. TAMSULOSINE [Concomitant]
     Active Substance: TAMSULOSIN HYDROCHLORIDE
     Dosage: 0.4 MG, 1X/DAY

REACTIONS (4)
  - Abdominal pain [Recovering/Resolving]
  - Urinary retention [Recovering/Resolving]
  - Anaemia [Recovering/Resolving]
  - Haematoma [Recovering/Resolving]

NARRATIVE: CASE EVENT DATE: 20161123
